FAERS Safety Report 23851073 (Version 1)
Quarter: 2024Q2

REPORT INFORMATION
  Report Type: Spontaneous
  Country: CN (occurrence: CN)
  Receive Date: 20240514
  Receipt Date: 20240514
  Transmission Date: 20240715
  Serious: Yes (Other)
  Sender: FDA-Public Use
  Company Number: CN-SA-SAC20240508001752

PATIENT
  Age: 66 Year
  Sex: Female

DRUGS (7)
  1. CLOPIDOGREL BISULFATE [Suspect]
     Active Substance: CLOPIDOGREL BISULFATE
     Indication: Cerebral infarction
     Dosage: 75 MG, QD
     Route: 048
     Dates: start: 20240330, end: 20240403
  2. WARFARIN SODIUM [Suspect]
     Active Substance: WARFARIN SODIUM
     Indication: Atrial fibrillation
     Dosage: 3.75 MG, QD
     Route: 048
     Dates: start: 20240330, end: 20240407
  3. WARFARIN SODIUM [Suspect]
     Active Substance: WARFARIN SODIUM
     Indication: Atrial flutter
  4. BUTYLPHTHALIDE [Suspect]
     Active Substance: BUTYLPHTHALIDE
     Dosage: 25 MG, BID
     Route: 041
     Dates: start: 20240330, end: 20240409
  5. OZAGREL [Suspect]
     Active Substance: OZAGREL
     Indication: Cerebral infarction
     Dosage: 112 MG, BID
     Route: 041
     Dates: start: 20240401, end: 20240407
  6. SODIUM CHLORIDE [Concomitant]
     Active Substance: SODIUM CHLORIDE
     Indication: Vehicle solution use
     Dosage: 100 ML, BID
     Route: 041
     Dates: start: 20240401, end: 20240407
  7. TROMETHAMINE [Suspect]
     Active Substance: TROMETHAMINE

REACTIONS (3)
  - Productive cough [Recovering/Resolving]
  - Conjunctival ulcer [Recovering/Resolving]
  - Conjunctival haemorrhage [Recovering/Resolving]

NARRATIVE: CASE EVENT DATE: 20240406
